FAERS Safety Report 11995827 (Version 3)
Quarter: 2016Q1

REPORT INFORMATION
  Report Type: Spontaneous
  Country: US (occurrence: US)
  Receive Date: 20160203
  Receipt Date: 20160318
  Transmission Date: 20160526
  Serious: Yes (Other)
  Sender: FDA-Public Use
  Company Number: US-PFIZER INC-2016043172

PATIENT
  Age: 89 Year
  Sex: Male
  Weight: 83.91 kg

DRUGS (6)
  1. WARFARIN [Concomitant]
     Active Substance: WARFARIN
     Dosage: UNK
     Dates: start: 2006
  2. LISINOPRIL. [Concomitant]
     Active Substance: LISINOPRIL
     Indication: HYPERTENSION
     Dosage: UNK
  3. PRAVACHOL [Concomitant]
     Active Substance: PRAVASTATIN SODIUM
     Dosage: UNK
  4. ATENOLOL. [Concomitant]
     Active Substance: ATENOLOL
     Dosage: UNK
  5. TIKOSYN [Suspect]
     Active Substance: DOFETILIDE
     Indication: ATRIAL FIBRILLATION
     Dosage: 0.5 MG, 2X/DAY
  6. TIKOSYN [Suspect]
     Active Substance: DOFETILIDE
     Dosage: 1 MG, 2X/DAY
     Dates: start: 2008, end: 201601

REACTIONS (3)
  - Fall [Recovered/Resolved]
  - Facial bones fracture [Recovered/Resolved]
  - Clavicle fracture [Recovered/Resolved]
